FAERS Safety Report 14265996 (Version 4)
Quarter: 2021Q3

REPORT INFORMATION
  Report Type: Spontaneous
  Country: DE (occurrence: DE)
  Receive Date: 20171209
  Receipt Date: 20210820
  Transmission Date: 20211014
  Serious: Yes (Hospitalization, Other)
  Sender: FDA-Public Use
  Company Number: DE-AUROBINDO-AUR-APL-2017-45071

PATIENT
  Age: 52 Year
  Sex: Female

DRUGS (13)
  1. VENLAFAXINE [Suspect]
     Active Substance: VENLAFAXINE HYDROCHLORIDE
     Dosage: 75 MILLIGRAM, ONCE A DAY QD
     Route: 048
     Dates: start: 20151030, end: 20151102
  2. SEROQUEL [Concomitant]
     Active Substance: QUETIAPINE FUMARATE
     Indication: PRODUCT USED FOR UNKNOWN INDICATION
     Dosage: 100 MILLIGRAM, ONCE A DAY (EINNAHME BEI BEDARF)
     Route: 048
     Dates: start: 20150929, end: 20151021
  3. VENLAFAXINE [Suspect]
     Active Substance: VENLAFAXINE HYDROCHLORIDE
     Indication: PRODUCT USED FOR UNKNOWN INDICATION
     Dosage: 37.5 MG, QD
     Route: 048
     Dates: start: 20151003, end: 20151003
  4. VENLAFAXINE [Suspect]
     Active Substance: VENLAFAXINE HYDROCHLORIDE
     Dosage: 112.5 MILLIGRAM, ONCE A DAY, QD
     Route: 048
     Dates: start: 20151024, end: 20151029
  5. ABILIFY [Suspect]
     Active Substance: ARIPIPRAZOLE
     Indication: PRODUCT USED FOR UNKNOWN INDICATION
     Dosage: 20 MILLIGRAM, ONCE A DAY
     Route: 048
     Dates: start: 20151007
  6. TAVOR [Concomitant]
     Indication: PRODUCT USED FOR UNKNOWN INDICATION
     Dosage: 1.5 MILLIGRAM, ONCE A DAY
     Route: 048
     Dates: start: 20151005, end: 20151104
  7. DELIX [Concomitant]
     Indication: PRODUCT USED FOR UNKNOWN INDICATION
     Dosage: 2.5 MILLIGRAM, ONCE A DAY,QD
     Route: 048
     Dates: start: 20150825, end: 20150910
  8. DELIX [Concomitant]
     Dosage: 1.25 MILLIGRAM, ONCE A DAY
     Route: 048
     Dates: start: 20150911, end: 20151014
  9. DELIX [Concomitant]
     Dosage: 2.5 MILLIGRAM, ONCE A DAY,QD
     Route: 048
     Dates: start: 20151015, end: 20151028
  10. DELIX [Concomitant]
     Dosage: 7.5 MILLIGRAM, ONCE A DAY, QD
     Route: 048
     Dates: start: 20151029
  11. VENLAFAXINE [Suspect]
     Active Substance: VENLAFAXINE HYDROCHLORIDE
     Dosage: 112.5 MILLIGRAM, ONCE A DAY QD
     Route: 048
     Dates: start: 20151008, end: 20151021
  12. VENLAFAXINE [Suspect]
     Active Substance: VENLAFAXINE HYDROCHLORIDE
     Dosage: 150 MILLIGRAM, ONCE A DAY, QD
     Route: 048
     Dates: start: 20151022, end: 20151023
  13. VENLAFAXINE [Suspect]
     Active Substance: VENLAFAXINE HYDROCHLORIDE
     Dosage: 75 MILLIGRAM, ONCE A DAY
     Route: 048
     Dates: start: 20151006, end: 20151007

REACTIONS (11)
  - Dyspnoea exertional [Unknown]
  - Hypertension [Recovered/Resolved]
  - Prescribed overdose [Unknown]
  - Head discomfort [Unknown]
  - Suicidal ideation [Unknown]
  - Renal pain [Unknown]
  - Dysuria [Unknown]
  - Muscle twitching [Unknown]
  - Peripheral swelling [Unknown]
  - Hypertensive crisis [Unknown]
  - Nasopharyngitis [Unknown]

NARRATIVE: CASE EVENT DATE: 20151007
